FAERS Safety Report 8093724-9 (Version None)
Quarter: 2012Q1

REPORT INFORMATION
  Report Type: 
  Country: None (occurrence: None)
  Receive Date: 20120129
  Receipt Date: 20111017
  Transmission Date: 20120608
  Serious: Yes (Hospitalization)
  Sender: FDA-Public Use
  Company Number: US-ABBOTT-11P-163-0865924-00

PATIENT
  Sex: Male

DRUGS (2)
  1. FLUOCINONIDE [Concomitant]
     Indication: PSORIASIS
  2. HUMIRA [Suspect]
     Indication: PSORIASIS
     Dates: start: 20101001, end: 20110401

REACTIONS (3)
  - ABSCESS LIMB [None]
  - STAPHYLOCOCCAL INFECTION [None]
  - GASTROINTESTINAL INFECTION [None]
